FAERS Safety Report 8775969 (Version 2)
Quarter: 2012Q4

REPORT INFORMATION
  Report Type: 
  Country: DE (occurrence: GB)
  Receive Date: 20120910
  Receipt Date: 20121022
  Transmission Date: 20130627
  Serious: Yes (Other)
  Sender: FDA-Public Use
  Company Number: GB-ASTRAZENECA-2012SE60226

PATIENT
  Sex: Male
  Weight: 90 kg

DRUGS (3)
  1. OMEPRAZOLE [Suspect]
     Indication: HIATUS HERNIA
     Dosage: 20
     Route: 048
     Dates: start: 20071116, end: 20120801
  2. OMEPRAZOLE [Suspect]
     Indication: GASTROOESOPHAGEAL REFLUX DISEASE
     Dosage: 20
     Route: 048
     Dates: start: 20071116, end: 20120801
  3. CO-CODAMOL 30 [Concomitant]
     Indication: PAIN
     Dosage: AS REQUIRED

REACTIONS (29)
  - Intestinal haemorrhage [Unknown]
  - Pain [Unknown]
  - Visual acuity reduced [Unknown]
  - Weight decreased [Unknown]
  - Breast disorder male [Unknown]
  - Tremor [Unknown]
  - Fall [Unknown]
  - Angiopathy [Unknown]
  - Dyspnoea [Unknown]
  - Hyperchlorhydria [Unknown]
  - Cellulitis [Unknown]
  - Osteopenia [Unknown]
  - Vitamin D deficiency [Unknown]
  - Anaemia [Unknown]
  - Dry eye [Unknown]
  - Vitreous detachment [Unknown]
  - Photopsia [Unknown]
  - Mouth haemorrhage [Unknown]
  - Bowel movement irregularity [Recovering/Resolving]
  - Oedema peripheral [Unknown]
  - Dry mouth [Unknown]
  - Skin burning sensation [Unknown]
  - Muscular weakness [Unknown]
  - Confusional state [Unknown]
  - Headache [Unknown]
  - Erythema [Unknown]
  - Depression [Unknown]
  - Nausea [Recovering/Resolving]
  - Headache [Recovering/Resolving]
